FAERS Safety Report 13771001 (Version 1)
Quarter: 2017Q3

REPORT INFORMATION
  Report Type: Spontaneous
  Country: US (occurrence: US)
  Receive Date: 20170720
  Receipt Date: 20170720
  Transmission Date: 20171127
  Serious: Yes (Life-Threatening, Disabling, Other)
  Sender: FDA-Public Use
  Company Number: None

PATIENT
  Age: 39 Year
  Sex: Female
  Weight: 56.7 kg

DRUGS (1)
  1. GADAVIST [Suspect]
     Active Substance: GADOBUTROL

REACTIONS (7)
  - Cough [None]
  - Alopecia [None]
  - Metal poisoning [None]
  - Arthralgia [None]
  - Bone pain [None]
  - Rash [None]
  - Contrast media allergy [None]

NARRATIVE: CASE EVENT DATE: 20160125
